FAERS Safety Report 24901206 (Version 1)
Quarter: 2025Q1

REPORT INFORMATION
  Report Type: Spontaneous
  Country: US (occurrence: US)
  Receive Date: 20250129
  Receipt Date: 20250129
  Transmission Date: 20250409
  Serious: Yes (Hospitalization)
  Sender: VERTEX
  Company Number: US-VERTEX PHARMACEUTICALS-2025-001367

PATIENT
  Age: 11 Year
  Sex: Female

DRUGS (2)
  1. KALYDECO [Suspect]
     Active Substance: IVACAFTOR
     Indication: Cystic fibrosis
     Route: 048
  2. KALYDECO [Suspect]
     Active Substance: IVACAFTOR
     Dosage: (RESUMED)
     Route: 048

REACTIONS (3)
  - Mycobacterium avium complex infection [Recovered/Resolved]
  - Pneumonia [Recovered/Resolved]
  - Sinus pain [Unknown]
